FAERS Safety Report 8202308-0 (Version None)
Quarter: 2012Q1

REPORT INFORMATION
  Report Type: 
  Country: None (occurrence: None)
  Receive Date: 20120312
  Receipt Date: 20120302
  Transmission Date: 20120608
  Serious: Yes (Hospitalization)
  Sender: FDA-Public Use
  Company Number: PHHY2012DE019640

PATIENT
  Sex: Male
  Weight: 90 kg

DRUGS (8)
  1. LORZAAR [Concomitant]
     Dosage: 1 DF, UNK
     Dates: start: 20010101
  2. JEVTANA KIT [Concomitant]
     Dosage: 2 CYCLES/25MG/M2BW
     Dates: start: 20110707
  3. ZYTIKA [Concomitant]
     Dosage: 250 MG PER DAY
     Dates: start: 20110926
  4. DEXAMETHASONE [Concomitant]
     Dosage: 8 MG, UNK
     Dates: start: 20110926
  5. ZOMETA [Suspect]
     Indication: BONE DISORDER
     Dosage: 4 MG, UNK
     Route: 042
     Dates: start: 20110228, end: 20110926
  6. DEGARELIX [Concomitant]
     Dates: start: 20100409
  7. CALCIUM [Concomitant]
     Dosage: 500 MG DAILY
  8. VITAMIN D [Concomitant]
     Dosage: 440 IE/DAY

REACTIONS (6)
  - URINARY RETENTION [None]
  - NEOPLASM [None]
  - ANAEMIA [None]
  - PYONEPHROSIS [None]
  - RENAL IMPAIRMENT [None]
  - GENERAL PHYSICAL CONDITION ABNORMAL [None]
